FAERS Safety Report 15517007 (Version 3)
Quarter: 2024Q2

REPORT INFORMATION
  Report Type: Report from Study
  Country: DE (occurrence: DE)
  Receive Date: 20181017
  Receipt Date: 20240610
  Transmission Date: 20240716
  Serious: Yes (Other)
  Sender: FDA-Public Use
  Company Number: None

PATIENT
  Age: 30 Year
  Sex: Female
  Weight: 72 kg

DRUGS (5)
  1. BISOPROLOL [Suspect]
     Active Substance: BISOPROLOL\BISOPROLOL FUMARATE
     Indication: Cardiac disorder
     Dosage: 5 MILLIGRAM, ONCE A DAY, IN THE BEGINNING 5 MG/DAY
     Route: 048
  2. BISOPROLOL [Suspect]
     Active Substance: BISOPROLOL\BISOPROLOL FUMARATE
     Dosage: 2.5 MILLIGRAM, ONCE A DAY, LATER REDUCTION TO 2.5 MG/DAY
     Route: 048
  3. LOSARTAN [Suspect]
     Active Substance: LOSARTAN
     Indication: Cardiac disorder
     Dosage: 10 MILLIGRAM, ONCE A DAY
     Route: 048
     Dates: end: 20140731
  4. FOLIC ACID [Concomitant]
     Active Substance: FOLIC ACID
     Indication: Prophylaxis of neural tube defect
     Dosage: UNK
     Route: 048
     Dates: start: 20140724
  5. RHOPHYLAC [Concomitant]
     Active Substance: HUMAN RHO(D) IMMUNE GLOBULIN
     Indication: Prophylaxis against Rh isoimmunisation
     Dosage: UNK (PKGID=4367900001)
     Route: 030
     Dates: start: 20150107

REACTIONS (4)
  - Maternal exposure during pregnancy [Recovered/Resolved]
  - Cervical incompetence [Unknown]
  - Caesarean section [Unknown]
  - Maternal exposure during delivery [Recovered/Resolved]

NARRATIVE: CASE EVENT DATE: 20150121
